FAERS Safety Report 22913585 (Version 2)
Quarter: 2023Q4

REPORT INFORMATION
  Report Type: Spontaneous
  Country: US (occurrence: US)
  Receive Date: 20230906
  Receipt Date: 20231002
  Transmission Date: 20240109
  Serious: No
  Sender: FDA-Public Use
  Company Number: US-PFIZER INC-202300291337

PATIENT
  Age: 32 Year
  Sex: Female

DRUGS (2)
  1. PAXLOVID [Suspect]
     Active Substance: NIRMATRELVIR\RITONAVIR
     Indication: COVID-19 treatment
     Dosage: UNK
     Route: 048
     Dates: start: 20230826, end: 20230830
  2. SIMPONI ARIA [Concomitant]
     Active Substance: GOLIMUMAB
     Dosage: IV INFUSION
     Route: 042
     Dates: start: 20230822, end: 20230822

REACTIONS (6)
  - COVID-19 [Unknown]
  - Disease recurrence [Unknown]
  - Nausea [Unknown]
  - Diarrhoea [Unknown]
  - Dysgeusia [Unknown]
  - Vomiting [Unknown]

NARRATIVE: CASE EVENT DATE: 20230903
